FAERS Safety Report 7464828-6 (Version None)
Quarter: 2011Q2

REPORT INFORMATION
  Report Type: 
  Country: None (occurrence: None)
  Receive Date: 20110509
  Receipt Date: 20110503
  Transmission Date: 20111010
  Serious: Yes (Other)
  Sender: FDA-Public Use
  Company Number: US-PFIZER INC-2011014313

PATIENT
  Sex: Female

DRUGS (3)
  1. CHANTIX [Suspect]
     Indication: SMOKING CESSATION THERAPY
     Dosage: UNK
     Dates: start: 20081201, end: 20090701
  2. ALPRAZOLAM [Concomitant]
     Indication: ANXIETY
     Dosage: UNK
     Dates: start: 20040101, end: 20090101
  3. ZYPREXA [Concomitant]
     Indication: ANXIETY
     Dosage: UNK
     Dates: start: 20070101, end: 20090101

REACTIONS (9)
  - AMNESIA [None]
  - DEPRESSION [None]
  - AGGRESSION [None]
  - ANGER [None]
  - ANXIETY [None]
  - SUICIDAL IDEATION [None]
  - HOMICIDAL IDEATION [None]
  - CONVULSION [None]
  - INSOMNIA [None]
